FAERS Safety Report 23861227 (Version 1)
Quarter: 2024Q2

REPORT INFORMATION
  Report Type: Spontaneous
  Country: CA (occurrence: CA)
  Receive Date: 20240516
  Receipt Date: 20240516
  Transmission Date: 20240715
  Serious: Yes (Hospitalization, Other)
  Sender: FDA-Public Use
  Company Number: CA-CELLTRION INC.-2024CA010656

PATIENT

DRUGS (1)
  1. TRASTUZUMAB [Suspect]
     Active Substance: TRASTUZUMAB
     Indication: Breast cancer metastatic
     Dosage: 300.0 MILLIGRAM 1 EVERY 3 WEEKS
     Route: 042

REACTIONS (4)
  - Blood test abnormal [Unknown]
  - Carcinoembryonic antigen increased [Unknown]
  - Urinary tract infection [Unknown]
  - Underdose [Unknown]
